FAERS Safety Report 16072101 (Version 1)
Quarter: 2019Q1

REPORT INFORMATION
  Report Type: Spontaneous
  Country: US (occurrence: US)
  Receive Date: 20190314
  Receipt Date: 20190314
  Transmission Date: 20190418
  Serious: No
  Sender: FDA-Public Use
  Company Number: US-ASTRAZENECA-2019SE29292

PATIENT
  Sex: Female
  Weight: 37.2 kg

DRUGS (3)
  1. SYMBICORT [Suspect]
     Active Substance: BUDESONIDE\FORMOTEROL FUMARATE DIHYDRATE
     Indication: ASTHMA
     Dosage: 120 DOSES, 160/4.5 MCG TWO INHALATIONS TWICE A DAY
     Route: 055
  2. SYMBICORT [Suspect]
     Active Substance: BUDESONIDE\FORMOTEROL FUMARATE DIHYDRATE
     Indication: LUNG DISORDER
     Dosage: 120 DOSES, 160/4.5 MCG TWO INHALATIONS TWICE A DAY
     Route: 055
  3. SYMBICORT [Suspect]
     Active Substance: BUDESONIDE\FORMOTEROL FUMARATE DIHYDRATE
     Indication: DYSPNOEA
     Dosage: 120 DOSES, 160/4.5 MCG TWO INHALATIONS TWICE A DAY
     Route: 055

REACTIONS (6)
  - Device failure [Unknown]
  - Device malfunction [Unknown]
  - Malaise [Unknown]
  - Dyspnoea [Unknown]
  - Intentional product misuse [Recovered/Resolved with Sequelae]
  - Incorrect dose administered by device [Not Recovered/Not Resolved]
